FAERS Safety Report 8534174-8 (Version None)
Quarter: 2012Q3

REPORT INFORMATION
  Report Type: 
  Country: None (occurrence: None)
  Receive Date: 20120724
  Receipt Date: 20120713
  Transmission Date: 20120928
  Serious: Yes (Other)
  Sender: FDA-Public Use
  Company Number: US-ACTELION-A-US2012-61089

PATIENT

DRUGS (2)
  1. TRACLEER [Suspect]
     Indication: PULMONARY ARTERIAL HYPERTENSION
     Dosage: UNK
     Route: 048
  2. REVATIO [Concomitant]

REACTIONS (14)
  - HEPATITIS C [None]
  - SKIN DISCOLOURATION [None]
  - ALANINE AMINOTRANSFERASE ABNORMAL [None]
  - ASPARTATE AMINOTRANSFERASE ABNORMAL [None]
  - CHROMATURIA [None]
  - URINARY TRACT INFECTION [None]
  - JAUNDICE [None]
  - DECREASED APPETITE [None]
  - NAUSEA [None]
  - ABDOMINAL DISTENSION [None]
  - LIVER INJURY [None]
  - DYSPEPSIA [None]
  - PYREXIA [None]
  - FATIGUE [None]
